FAERS Safety Report 9825281 (Version 1)
Quarter: 2014Q1

REPORT INFORMATION
  Report Type: Spontaneous
  Country: US (occurrence: None)
  Receive Date: 20140115
  Receipt Date: 20140115
  Transmission Date: 20141002
  Serious: Yes (Other)
  Sender: FDA-Public Use
  Company Number: None

PATIENT
  Age: 75 Year
  Sex: Male
  Weight: 90.9 kg

DRUGS (1)
  1. RIVAROXABAN [Suspect]
     Dosage: 10 MG  UD  PO
     Route: 048

REACTIONS (3)
  - Nausea [None]
  - Vomiting [None]
  - Hepatic enzyme increased [None]
